FAERS Safety Report 9904905 (Version 1)
Quarter: 2013Q2

REPORT INFORMATION
  Report Type: Spontaneous
  Country: US (occurrence: None)
  Receive Date: 20130305
  Receipt Date: 20130305
  Transmission Date: 20140414
  Serious: Yes (Disabling, Other)
  Sender: FDA-Public Use
  Company Number: 163-21880-12030607

PATIENT
  Age: 61 Year
  Sex: Female
  Weight: 93.9 kg

DRUGS (7)
  1. REVLIMID [Suspect]
     Indication: PLASMA CELL MYELOMA
     Dosage: 25 MG , 1 IN 1 D, PO
     Route: 048
     Dates: start: 20110116
  2. VELCADE (BORTEZOMIB) (UNKNOWN) [Concomitant]
  3. DECADRON (DEXAMETHASONE) (UNKNOWN) [Concomitant]
  4. ZOMETA (ZOLEDRONIC ACID) (UNKNOWN) [Concomitant]
  5. ASPIRIN (ACETYLSALICYLIC ACID) (UNKNOWN) (ACETYLSALICYLIC ACID) [Concomitant]
  6. VITAMIN D (ERGOCALCIFEROL) (UNKNOWN) [Concomitant]
  7. TUMS (CALCIUM CARBONATE) (UNKNOWN) [Concomitant]

REACTIONS (1)
  - Platelet count decreased [None]
